FAERS Safety Report 25969161 (Version 1)
Quarter: 2025Q4

REPORT INFORMATION
  Report Type: Report from Study
  Country: US (occurrence: US)
  Receive Date: 20251028
  Receipt Date: 20251028
  Transmission Date: 20260117
  Serious: Yes (Other)
  Sender: OTSUKA
  Company Number: US-MMM-Otsuka-1ALQ4NX6

PATIENT
  Age: 35 Year
  Sex: Female

DRUGS (7)
  1. TOLVAPTAN [Suspect]
     Active Substance: TOLVAPTAN
     Indication: Congenital cystic kidney disease
     Dosage: 45 MG, QD (EVERY MORNING)
     Dates: end: 20251002
  2. TOLVAPTAN [Suspect]
     Active Substance: TOLVAPTAN
     Dosage: 15 MG, QD (8 HOURS LATER EVERYDAY)
     Dates: end: 20251002
  3. LABETALOL TAB 100MG [Concomitant]
     Indication: Product used for unknown indication
     Dosage: 100 MG
     Route: 065
  4. LEVOTHYROXINE [Concomitant]
     Active Substance: LEVOTHYROXINE
     Indication: Product used for unknown indication
     Dosage: 75 ?G
     Route: 065
  5. MICROGESTIN TAB 1/20 [Concomitant]
     Indication: Product used for unknown indication
     Dosage: UNK (1/20)
     Route: 065
  6. VITAMIN D CAP 400UNIT [Concomitant]
     Indication: Product used for unknown indication
     Dosage: 400 IU
     Route: 065
  7. WELLBUTRIN TAB 100MG SR [Concomitant]
     Indication: Product used for unknown indication
     Dosage: 100 MG
     Route: 065

REACTIONS (1)
  - Surgery [Unknown]

NARRATIVE: CASE EVENT DATE: 20251014
